FAERS Safety Report 12919794 (Version 1)
Quarter: 2016Q4

REPORT INFORMATION
  Report Type: Spontaneous
  Country: US (occurrence: US)
  Receive Date: 20161103
  Receipt Date: 20161103
  Transmission Date: 20170207
  Serious: No
  Sender: FDA-Public Use
  Company Number: None

PATIENT
  Sex: Female

DRUGS (2)
  1. HARVONI [Suspect]
     Active Substance: LEDIPASVIR\SOFOSBUVIR
     Indication: HEPATITIS C
     Dosage: ONE 90/400MG TABLET ONCE DAILY ORAL ROUTE
     Route: 048
     Dates: start: 20160914, end: 20160928
  2. HARVONI [Suspect]
     Active Substance: LEDIPASVIR\SOFOSBUVIR
     Indication: DRUG DEPENDENCE
     Dosage: ONE 90/400MG TABLET ONCE DAILY ORAL ROUTE
     Route: 048
     Dates: start: 20160914, end: 20160928

REACTIONS (2)
  - Exposure during pregnancy [None]
  - Pregnancy [None]
